FAERS Safety Report 7793331-9 (Version None)
Quarter: 2011Q3

REPORT INFORMATION
  Report Type: 
  Country: None (occurrence: None)
  Receive Date: 20110930
  Receipt Date: 20110930
  Transmission Date: 20111222
  Serious: No
  Sender: FDA-Public Use
  Company Number: None

PATIENT
  Age: 80 Year
  Sex: Male
  Weight: 74.8435 kg

DRUGS (2)
  1. DALIRESP [Suspect]
     Indication: PNEUMONIA
     Dosage: 2X'S A DAY
  2. DALIRESP [Suspect]
     Indication: EMPHYSEMA
     Dosage: 2X'S A DAY

REACTIONS (4)
  - BACK PAIN [None]
  - NAUSEA [None]
  - HEADACHE [None]
  - DIARRHOEA [None]
